FAERS Safety Report 8003335-9 (Version None)
Quarter: 2011Q4

REPORT INFORMATION
  Report Type: 
  Country: None (occurrence: None)
  Receive Date: 20111222
  Receipt Date: 20111220
  Transmission Date: 20120403
  Serious: Yes (Other)
  Sender: FDA-Public Use
  Company Number: PHHO2011DE021229

PATIENT
  Sex: Female
  Weight: 86 kg

DRUGS (2)
  1. FTY [Suspect]
     Indication: RELAPSING-REMITTING MULTIPLE SCLEROSIS
     Dosage: 0.5 MG, UNK
     Route: 048
     Dates: start: 20110629, end: 20111220
  2. MEDROXYPROGESTERONE ACETATE [Concomitant]
     Indication: CONTRACEPTION
     Dosage: 150 MG, UNK
     Dates: start: 20030101

REACTIONS (1)
  - DYSPLASTIC NAEVUS [None]
